FAERS Safety Report 16032247 (Version 1)
Quarter: 2019Q1

REPORT INFORMATION
  Report Type: Report from Study
  Country: None (occurrence: US)
  Receive Date: 20190304
  Receipt Date: 20190304
  Transmission Date: 20190418
  Serious: Yes (Other)
  Sender: FDA-Public Use
  Company Number: US-VIFOR (INTERNATIONAL) INC.-VIT-2018-03176

PATIENT
  Age: 66 Year
  Sex: Female
  Weight: 69.46 kg

DRUGS (3)
  1. VELTASSA [Suspect]
     Active Substance: PATIROMER
     Indication: HYPERKALAEMIA
     Route: 048
     Dates: start: 20160826
  2. SIMVASTATIN. [Concomitant]
     Active Substance: SIMVASTATIN
  3. NOVOLIN [Concomitant]
     Active Substance: INSULIN HUMAN

REACTIONS (1)
  - Product dose omission [Recovered/Resolved]

NARRATIVE: CASE EVENT DATE: 201803
